FAERS Safety Report 8624175-3 (Version None)
Quarter: 2012Q3

REPORT INFORMATION
  Report Type: 
  Country: None (occurrence: None)
  Receive Date: 20120827
  Receipt Date: 20120823
  Transmission Date: 20120928
  Serious: Yes (Other)
  Sender: FDA-Public Use
  Company Number: US-JNJFOC-20120700564

PATIENT
  Sex: Female
  Weight: 65.77 kg

DRUGS (5)
  1. REMICADE [Suspect]
     Indication: COLITIS ULCERATIVE
     Route: 042
     Dates: start: 20120701
  2. REMICADE [Suspect]
     Route: 042
     Dates: start: 20101101
  3. LIALDA [Concomitant]
     Indication: COLITIS ULCERATIVE
     Dosage: TOTAL DOSE: 1.2GRAMS
     Route: 048
     Dates: start: 20090101
  4. SINGULAIR [Concomitant]
     Indication: MULTIPLE ALLERGIES
     Route: 048
     Dates: start: 20120101
  5. XYZAL [Concomitant]
     Indication: SEASONAL ALLERGY
     Route: 065

REACTIONS (4)
  - HERPES ZOSTER [None]
  - HAEMORRHAGE [None]
  - HYPERSENSITIVITY [None]
  - SCAR [None]
